FAERS Safety Report 23069447 (Version 1)
Quarter: 2023Q4

REPORT INFORMATION
  Report Type: Spontaneous
  Country: CH (occurrence: CH)
  Receive Date: 20231016
  Receipt Date: 20231016
  Transmission Date: 20240109
  Serious: Yes (Hospitalization, Other)
  Sender: FDA-Public Use
  Company Number: None

PATIENT
  Age: 52 Year
  Sex: Female

DRUGS (3)
  1. CYTARABINE [Suspect]
     Active Substance: CYTARABINE
     Indication: Malignant neoplasm progression
     Dosage: 3580 MG, 2X/DAY
     Route: 042
     Dates: start: 20230825, end: 20230825
  2. DEXAMETHASONE [Suspect]
     Active Substance: DEXAMETHASONE
     Indication: Malignant neoplasm progression
     Dosage: 40 MG, DAILY
     Route: 042
     Dates: start: 20230824, end: 20230827
  3. OXALIPLATIN [Suspect]
     Active Substance: OXALIPLATIN
     Indication: Malignant neoplasm progression
     Dosage: 233 MG, DAILY
     Route: 042
     Dates: start: 20230824, end: 20230824

REACTIONS (3)
  - Agranulocytosis [Not Recovered/Not Resolved]
  - Immune thrombocytopenia [Not Recovered/Not Resolved]
  - Thrombocytopenia [Not Recovered/Not Resolved]

NARRATIVE: CASE EVENT DATE: 20230830
